FAERS Safety Report 16007006 (Version 1)
Quarter: 2019Q1

REPORT INFORMATION
  Report Type: Spontaneous
  Country: US (occurrence: US)
  Receive Date: 20190226
  Receipt Date: 20190226
  Transmission Date: 20190418
  Serious: No
  Sender: FDA-Public Use
  Company Number: US-TEVA-2019-US-1006887

PATIENT
  Sex: Female

DRUGS (1)
  1. DILTIAZEM HYDROCHLORIDE TABLETS [Suspect]
     Active Substance: DILTIAZEM HYDROCHLORIDE
     Dosage: ONE TABLET IN THE MORNING, HALF TABLET AT BEDTIME
     Route: 065

REACTIONS (2)
  - Wrong technique in product usage process [Unknown]
  - Product prescribing error [Unknown]
